FAERS Safety Report 11990027 (Version 3)
Quarter: 2016Q2

REPORT INFORMATION
  Report Type: Spontaneous
  Country: JP (occurrence: JP)
  Receive Date: 20160202
  Receipt Date: 20160610
  Transmission Date: 20160815
  Serious: Yes (Hospitalization)
  Sender: FDA-Public Use
  Company Number: JP-ELI_LILLY_AND_COMPANY-JP201601009136

PATIENT
  Age: 72 Year
  Sex: Male
  Weight: 66.9 kg

DRUGS (8)
  1. REBAMIPIDE [Concomitant]
     Active Substance: REBAMIPIDE
  2. ALDACTONE [Concomitant]
     Active Substance: SPIRONOLACTONE
  3. LASIX [Concomitant]
     Active Substance: FUROSEMIDE
  4. CYRAMZA [Suspect]
     Active Substance: RAMUCIRUMAB
     Indication: GASTRIC CANCER STAGE IV
     Dosage: 8 MG/KG, OTHER
     Route: 042
     Dates: start: 20151214, end: 20151228
  5. RESTREAM [Concomitant]
  6. TAXOL [Suspect]
     Active Substance: PACLITAXEL
     Indication: GASTRIC CANCER STAGE IV
     Dosage: 60 MG/M2, OTHER
     Route: 042
     Dates: start: 20151006, end: 20151228
  7. EVIPROSTAT N [Concomitant]
     Active Substance: HERBALS
  8. LOBU [Concomitant]
     Active Substance: LOBUCAVIR
     Indication: MYALGIA

REACTIONS (3)
  - Cardiac failure acute [Recovered/Resolved]
  - Nasopharyngitis [Unknown]
  - Proteinuria [Recovering/Resolving]

NARRATIVE: CASE EVENT DATE: 20151228
